FAERS Safety Report 24432554 (Version 1)
Quarter: 2024Q4

REPORT INFORMATION
  Report Type: Spontaneous
  Country: PL (occurrence: PL)
  Receive Date: 20241014
  Receipt Date: 20241014
  Transmission Date: 20250115
  Serious: Yes (Life-Threatening, Hospitalization, Other)
  Sender: AUROBINDO
  Company Number: PL-URPL-1-3491-2020

PATIENT
  Age: 34 Year
  Sex: Female

DRUGS (8)
  1. PREGABALIN [Suspect]
     Active Substance: PREGABALIN
     Indication: Epilepsy
     Dosage: UNK
     Route: 065
  2. PREGABALIN [Suspect]
     Active Substance: PREGABALIN
     Indication: Ankylosing spondylitis
  3. TRAMADOL [Suspect]
     Active Substance: TRAMADOL
     Indication: Epilepsy
     Dosage: 250 MILLIGRAM, ONCE A DAY
     Route: 065
  4. TRAMADOL [Suspect]
     Active Substance: TRAMADOL
     Indication: Ankylosing spondylitis
  5. COSENTYX [Suspect]
     Active Substance: SECUKINUMAB
     Indication: Ankylosing spondylitis
     Dosage: 150 MILLIGRAM
     Route: 058
  6. COSENTYX [Suspect]
     Active Substance: SECUKINUMAB
     Indication: Epilepsy
  7. LAMOTRIGINE [Suspect]
     Active Substance: LAMOTRIGINE
     Indication: Ankylosing spondylitis
     Dosage: UNK
     Route: 065
  8. LAMOTRIGINE [Suspect]
     Active Substance: LAMOTRIGINE
     Indication: Epilepsy

REACTIONS (2)
  - Gastrointestinal erosion [Unknown]
  - Pancytopenia [Unknown]

NARRATIVE: CASE EVENT DATE: 20201202
